FAERS Safety Report 10170251 (Version 2)
Quarter: 2014Q2

REPORT INFORMATION
  Report Type: Spontaneous
  Country: US (occurrence: US)
  Receive Date: 20140513
  Receipt Date: 20140513
  Transmission Date: 20141212
  Serious: Yes (Hospitalization)
  Sender: FDA-Public Use
  Company Number: US-FRI-1000066831

PATIENT
  Sex: Male

DRUGS (4)
  1. DALIRESP [Suspect]
     Dosage: AS NEEDED
     Dates: start: 20140326, end: 20140407
  2. XANAX [Concomitant]
     Indication: ANXIETY
  3. DIVALPROEX SODIUM [Concomitant]
     Indication: CONVULSION
  4. TAMSULOSIN [Concomitant]

REACTIONS (9)
  - Muscular weakness [Recovering/Resolving]
  - Diarrhoea [Not Recovered/Not Resolved]
  - Nausea [Unknown]
  - Headache [Unknown]
  - Insomnia [Unknown]
  - Dizziness [Unknown]
  - Decreased appetite [Unknown]
  - Depression [Unknown]
  - Back disorder [Recovered/Resolved]
